FAERS Safety Report 4446534-5 (Version None)
Quarter: 2004Q3

REPORT INFORMATION
  Report Type: 
  Country: None (occurrence: None)
  Receive Date: 20040902
  Receipt Date: 20040813
  Transmission Date: 20050211
  Serious: Yes (Death)
  Sender: FDA-Public Use
  Company Number: EWC040639753

PATIENT
  Age: 39 Year
  Sex: Male
  Weight: 120 kg

DRUGS (7)
  1. ZYPREXA [Suspect]
     Indication: AGITATION
     Dosage: 10 MG
     Dates: start: 20040609, end: 20040609
  2. RISPERDAL CONSTA [Concomitant]
  3. RIVOTRIL (CLONAZEPAM) [Concomitant]
  4. RISPERDAL [Concomitant]
  5. CLORAZEPATE DIPOTASSIUM [Concomitant]
  6. DEPAKENE [Concomitant]
  7. HALOPERIDOL [Concomitant]

REACTIONS (5)
  - LOW DENSITY LIPOPROTEIN INCREASED [None]
  - PATIENT RESTRAINT [None]
  - RESTLESSNESS [None]
  - SEDATION [None]
  - SLEEP APNOEA SYNDROME [None]
